FAERS Safety Report 18444666 (Version 1)
Quarter: 2020Q4

REPORT INFORMATION
  Report Type: Spontaneous
  Country: IT (occurrence: IT)
  Receive Date: 20201030
  Receipt Date: 20201030
  Transmission Date: 20210114
  Serious: Yes (Death, Life-Threatening, Hospitalization, Other)
  Sender: FDA-Public Use
  Company Number: IT-ACCORD-206444

PATIENT
  Age: 55 Year
  Sex: Female

DRUGS (5)
  1. PAZOPANIB [Suspect]
     Active Substance: PAZOPANIB
     Indication: INFLAMMATORY MYOFIBROBLASTIC TUMOUR
     Dates: start: 201910
  2. PAZOPANIB [Suspect]
     Active Substance: PAZOPANIB
     Indication: CONNECTIVE TISSUE NEOPLASM
     Dates: start: 201910
  3. GEMCITABINE/GEMCITABINE HYDROCHLORIDE [Suspect]
     Active Substance: GEMCITABINE\GEMCITABINE HYDROCHLORIDE
     Indication: INFLAMMATORY MYOFIBROBLASTIC TUMOUR
     Dates: start: 201903, end: 201909
  4. ZOLEDRONIC ACID [Concomitant]
     Active Substance: ZOLEDRONIC ACID
     Indication: INFLAMMATORY MYOFIBROBLASTIC TUMOUR
     Dates: start: 201903
  5. ZOLEDRONIC ACID [Concomitant]
     Active Substance: ZOLEDRONIC ACID
     Indication: SPINDLE CELL SARCOMA
     Dates: start: 201903

REACTIONS (5)
  - Cardiotoxicity [Fatal]
  - Left ventricular dysfunction [Not Recovered/Not Resolved]
  - Cardiac failure acute [Fatal]
  - Cardio-respiratory arrest [Fatal]
  - Off label use [Unknown]

NARRATIVE: CASE EVENT DATE: 2019
